FAERS Safety Report 22130997 (Version 3)
Quarter: 2023Q2

REPORT INFORMATION
  Report Type: Spontaneous
  Country: US (occurrence: US)
  Receive Date: 20230323
  Receipt Date: 20230426
  Transmission Date: 20230721
  Serious: Yes (Hospitalization)
  Sender: FDA-Public Use
  Company Number: US-ORGANON-O2303USA001839

PATIENT
  Sex: Female

DRUGS (2)
  1. NEXPLANON [Suspect]
     Active Substance: ETONOGESTREL
     Dosage: ONE EVERY THREE YEARS, LEFT UPPER ARM
     Route: 059
     Dates: start: 20211209
  2. NEXPLANON [Suspect]
     Active Substance: ETONOGESTREL
     Dosage: 1 IMPLANT, ONE EVERY THREE YEARS
     Route: 059
     Dates: end: 20210421

REACTIONS (3)
  - Adverse event [Unknown]
  - Device breakage [Recovered/Resolved]
  - Menstrual disorder [Unknown]
